FAERS Safety Report 13521598 (Version 1)
Quarter: 2017Q2

REPORT INFORMATION
  Report Type: Spontaneous
  Country: US (occurrence: US)
  Receive Date: 20170506
  Receipt Date: 20170506
  Transmission Date: 20170830
  Serious: Yes (Disabling)
  Sender: FDA-Public Use
  Company Number: None

PATIENT
  Age: 60 Year
  Sex: Female
  Weight: 67.5 kg

DRUGS (10)
  1. LEVOFLOXACIN 500 MG [Suspect]
     Active Substance: LEVOFLOXACIN
     Indication: SINUSITIS
     Dosage: ?          QUANTITY:1 TABLET(S);?
     Route: 048
     Dates: start: 20170304, end: 20170308
  2. LEVOCETIRIZINE [Concomitant]
     Active Substance: LEVOCETIRIZINE
  3. TYLENOL [Concomitant]
     Active Substance: ACETAMINOPHEN
  4. FISH OIL [Concomitant]
     Active Substance: FISH OIL
  5. PATADAY [Concomitant]
     Active Substance: OLOPATADINE HYDROCHLORIDE
  6. MULTI VITAMIN [Concomitant]
     Active Substance: VITAMINS
  7. IBUPROPHEN [Concomitant]
     Active Substance: IBUPROFEN
  8. FLUTICASONE PROP [Concomitant]
  9. FLAX OIL [Concomitant]
  10. PROBIOTICS [Concomitant]
     Active Substance: PROBIOTICS NOS

REACTIONS (7)
  - Dyspnoea [None]
  - Gait disturbance [None]
  - Feeling abnormal [None]
  - Joint swelling [None]
  - Dyskinesia [None]
  - Arthralgia [None]
  - Joint stiffness [None]

NARRATIVE: CASE EVENT DATE: 20170305
